FAERS Safety Report 17187209 (Version 1)
Quarter: 2019Q4

REPORT INFORMATION
  Report Type: Spontaneous
  Country: US (occurrence: US)
  Receive Date: 20191220
  Receipt Date: 20191220
  Transmission Date: 20200122
  Serious: No
  Sender: FDA-Public Use
  Company Number: NVSC2019US074310

PATIENT
  Age: 85 Year
  Sex: Female

DRUGS (1)
  1. BETOPTIC S [Suspect]
     Active Substance: BETAXOLOL HYDROCHLORIDE
     Indication: INTRAOCULAR PRESSURE INCREASED
     Dosage: UNK
     Route: 065

REACTIONS (1)
  - Intraocular pressure increased [Recovered/Resolved]
